FAERS Safety Report 11443162 (Version 9)
Quarter: 2015Q4

REPORT INFORMATION
  Report Type: Spontaneous
  Country: US (occurrence: US)
  Receive Date: 20150901
  Receipt Date: 20151207
  Transmission Date: 20160304
  Serious: Yes (Hospitalization)
  Sender: FDA-Public Use
  Company Number: US-UNITED THERAPEUTICS-UNT-2015-006713

PATIENT
  Age: 31 Year
  Sex: Female
  Weight: 73.47 kg

DRUGS (8)
  1. REMODULIN [Suspect]
     Active Substance: TREPROSTINIL
     Dosage: 0.036 ?G/KG,CONTINUING
     Route: 041
  2. REMODULIN [Suspect]
     Active Substance: TREPROSTINIL
     Dosage: 0.022 ?G/KG, CONTINUING
     Route: 041
  3. REMODULIN [Suspect]
     Active Substance: TREPROSTINIL
     Indication: PULMONARY ARTERIAL HYPERTENSION
     Dosage: 0.018 ?G/KG, CONTINUING
     Route: 041
     Dates: start: 20150127
  4. REMODULIN [Suspect]
     Active Substance: TREPROSTINIL
     Dosage: 0.045 ?G/KG,CONTINUING
     Route: 041
  5. REMODULIN [Suspect]
     Active Substance: TREPROSTINIL
     Dosage: 0.031 ?G/KG,CONTINUING
     Route: 041
     Dates: start: 20150604
  6. REMODULIN [Suspect]
     Active Substance: TREPROSTINIL
     Dosage: 0.04 ?G/KG, CONTINUING
     Route: 041
  7. LETAIRIS [Concomitant]
     Active Substance: AMBRISENTAN
     Indication: PRODUCT USED FOR UNKNOWN INDICATION
  8. ADCIRCA [Concomitant]
     Active Substance: TADALAFIL
     Indication: PRODUCT USED FOR UNKNOWN INDICATION

REACTIONS (33)
  - Device dislocation [Unknown]
  - Conjunctivitis [Unknown]
  - Pain in jaw [Unknown]
  - Injection site erythema [Unknown]
  - Fatigue [Unknown]
  - Injection site pruritus [Unknown]
  - Pruritus [Unknown]
  - Injection site discharge [Unknown]
  - Headache [Unknown]
  - Dizziness [Unknown]
  - Injection site reaction [Unknown]
  - Palpitations [Unknown]
  - Device issue [Unknown]
  - Flushing [Unknown]
  - Dyspnoea exertional [Unknown]
  - Venous thrombosis limb [Unknown]
  - Pain in extremity [Unknown]
  - Injection site vesicles [Unknown]
  - Injection site pain [Unknown]
  - Injection site haemorrhage [Unknown]
  - Dermatitis contact [Unknown]
  - Drug dose omission [Unknown]
  - Hot flush [Unknown]
  - Sepsis [Unknown]
  - Pulmonary arterial hypertension [Unknown]
  - Skin reaction [Unknown]
  - Ear discomfort [Unknown]
  - Rash [Unknown]
  - Injection site oedema [Unknown]
  - Pyrexia [Unknown]
  - Device related infection [Unknown]
  - Neuralgia [Unknown]
  - Chest pain [Unknown]

NARRATIVE: CASE EVENT DATE: 2015
